FAERS Safety Report 8558634-9 (Version None)
Quarter: 2012Q3

REPORT INFORMATION
  Report Type: 
  Country: None (occurrence: None)
  Receive Date: 20120801
  Receipt Date: 20120725
  Transmission Date: 20120928
  Serious: Yes (Other)
  Sender: FDA-Public Use
  Company Number: US-CELGENEUS-163-21880-12072972

PATIENT
  Sex: Male

DRUGS (6)
  1. TRIAMCINOLONE [Concomitant]
     Route: 065
     Dates: start: 20120601
  2. REVLIMID [Suspect]
     Dosage: 2.5 MILLIGRAM
     Route: 048
     Dates: start: 20120701
  3. PREDNISONE [Concomitant]
     Route: 065
     Dates: start: 20120601
  4. HYDROXYZINE [Concomitant]
     Dosage: 25 MILLIGRAM
     Route: 065
     Dates: start: 20120601
  5. REVLIMID [Suspect]
     Indication: MULTIPLE MYELOMA
     Dosage: 25 MILLIGRAM
     Route: 048
     Dates: start: 20120515
  6. FENTANYL CITRATE [Concomitant]
     Indication: PAIN
     Dosage: 25 MICROGRAM
     Route: 065
     Dates: start: 20120601

REACTIONS (5)
  - LIP SWELLING [None]
  - THROAT TIGHTNESS [None]
  - AGEUSIA [None]
  - RASH [None]
  - FACE OEDEMA [None]
